FAERS Safety Report 7063343-1 (Version None)
Quarter: 2010Q4

REPORT INFORMATION
  Report Type: 
  Country: None (occurrence: None)
  Receive Date: 20101026
  Receipt Date: 20091103
  Transmission Date: 20110411
  Serious: No
  Sender: FDA-Public Use
  Company Number: US-ABBOTT-09P-163-0606723-00

PATIENT
  Age: 38 Year
  Sex: Female

DRUGS (1)
  1. LUPRON DEPOT [Suspect]
     Indication: ENDOMETRIOSIS
     Route: 030
     Dates: start: 20080601, end: 20080701

REACTIONS (48)
  - ABDOMINAL DISCOMFORT [None]
  - ACNE [None]
  - AGEUSIA [None]
  - ALOPECIA [None]
  - AMNESIA [None]
  - ARTHRALGIA [None]
  - ASTHENIA [None]
  - BODY TEMPERATURE DECREASED [None]
  - BONE PAIN [None]
  - CHILLS [None]
  - CONFUSIONAL STATE [None]
  - DECREASED APPETITE [None]
  - DEPRESSION [None]
  - DIZZINESS [None]
  - DRUG LEVEL INCREASED [None]
  - DRY MOUTH [None]
  - FATIGUE [None]
  - GASTROOESOPHAGEAL REFLUX DISEASE [None]
  - HAIR TEXTURE ABNORMAL [None]
  - HEADACHE [None]
  - HEARING IMPAIRED [None]
  - HIGH DENSITY LIPOPROTEIN DECREASED [None]
  - HYPERAESTHESIA [None]
  - HYPERTHYROIDISM [None]
  - HYPOAESTHESIA [None]
  - LOCAL SWELLING [None]
  - MALNUTRITION [None]
  - MENTAL IMPAIRMENT [None]
  - MYALGIA [None]
  - NAUSEA [None]
  - OEDEMA PERIPHERAL [None]
  - PALPITATIONS [None]
  - PARAESTHESIA [None]
  - PHOTOSENSITIVITY REACTION [None]
  - PRURITUS GENERALISED [None]
  - RASH [None]
  - RETCHING [None]
  - SENSATION OF FOREIGN BODY [None]
  - SENSORY DISTURBANCE [None]
  - SUICIDAL IDEATION [None]
  - SYNCOPE [None]
  - TINNITUS [None]
  - URTICARIA [None]
  - VIITH NERVE PARALYSIS [None]
  - VISION BLURRED [None]
  - VISUAL IMPAIRMENT [None]
  - VOMITING [None]
  - WEIGHT DECREASED [None]
